FAERS Safety Report 10373917 (Version 1)
Quarter: 2014Q1

REPORT INFORMATION
  Report Type: Spontaneous
  Country: US (occurrence: None)
  Receive Date: 20140306
  Receipt Date: 20140306
  Transmission Date: 20141002
  Serious: Yes (Hospitalization)
  Sender: FDA-Public Use
  Company Number: 163-21880-13011497

PATIENT
  Age: 52 Year
  Sex: Female

DRUGS (13)
  1. REVLIMID (LENALIDOMIDE) (25 MILLIGRAM, CAPSULES) [Suspect]
     Indication: PLASMA CELL MYELOMA
     Route: 048
     Dates: start: 20121105
  2. AMBIEN (ZOLPIDEM TARTRATE) [Concomitant]
  3. ADVAIR DISKUS (SERETIDE MITE) (INHALANT) [Concomitant]
  4. ALLOPURINOL [Concomitant]
  5. COMPAZINE (PROCHLORPERAZINE EDISYLATE) (TABLETS) [Concomitant]
  6. DEXAMETHASONE (TABLETS) [Concomitant]
  7. FLONASE (FLUTICASONE PROPIONATE) (SPRAY (NOT INHALATION)) [Concomitant]
  8. K-DUR (POTASSIUM CHLORIDE) (TABLETS) [Concomitant]
  9. LORAZEPAM (TABLETS) [Concomitant]
  10. PANTOPRAZOLE (TABLETS) [Concomitant]
  11. PROAIR HFA (SALBUTAMOL SULFATE) (AEROSOL FOR INHALATION) [Concomitant]
  12. SIMVASTATIN (TABLETS) [Concomitant]
  13. BORTEZOMIB [Concomitant]

REACTIONS (1)
  - Plasma cell myeloma [None]
